FAERS Safety Report 5258835-1 (Version None)
Quarter: 2007Q1

REPORT INFORMATION
  Report Type: 
  Country: None (occurrence: None)
  Receive Date: 20070308
  Receipt Date: 20070306
  Transmission Date: 20070707
  Serious: Yes (Hospitalization, Other)
  Sender: FDA-Public Use
  Company Number: US-GLAXOSMITHKLINE-A0642072A

PATIENT
  Age: 67 Year
  Sex: Male

DRUGS (3)
  1. LAMICTAL [Suspect]
     Indication: SCHIZOAFFECTIVE DISORDER
     Dosage: 200MG TWICE PER DAY
     Route: 048
     Dates: start: 20060918
  2. COGENTIN [Concomitant]
  3. XELODA [Concomitant]

REACTIONS (11)
  - ANXIETY [None]
  - CHEST PAIN [None]
  - ERYTHEMA [None]
  - HALLUCINATION, AUDITORY [None]
  - PAIN [None]
  - PRURITUS [None]
  - PSYCHIATRIC SYMPTOM [None]
  - RASH [None]
  - RASH MACULAR [None]
  - SKIN IRRITATION [None]
  - STEVENS-JOHNSON SYNDROME [None]
